FAERS Safety Report 5205276-9 (Version None)
Quarter: 2007Q1

REPORT INFORMATION
  Report Type: 
  Country: None (occurrence: None)
  Receive Date: 20070108
  Receipt Date: 20061226
  Transmission Date: 20070707
  Serious: Yes (Hospitalization)
  Sender: FDA-Public Use
  Company Number: B0451891A

PATIENT
  Age: 61 Year
  Sex: Male
  Weight: 71.8498 kg

DRUGS (1)
  1. EPIVIR-HBV [Suspect]
     Indication: HEPATITIS B
     Dosage: ORAL
     Route: 048

REACTIONS (15)
  - ABDOMINAL DISTENSION [None]
  - ALANINE AMINOTRANSFERASE INCREASED [None]
  - ASCITES [None]
  - ASPARTATE AMINOTRANSFERASE INCREASED [None]
  - BLOOD ALBUMIN DECREASED [None]
  - BLOOD ALKALINE PHOSPHATASE INCREASED [None]
  - BLOOD BILIRUBIN INCREASED [None]
  - HENOCH-SCHONLEIN PURPURA [None]
  - HEPATITIS B DNA ASSAY POSITIVE [None]
  - JAUNDICE [None]
  - NEPHRITIS [None]
  - OEDEMA PERIPHERAL [None]
  - PLATELET COUNT INCREASED [None]
  - RENAL IMPAIRMENT [None]
  - VIRAL MUTATION IDENTIFIED [None]
